FAERS Safety Report 4734178-7 (Version None)
Quarter: 2005Q3

REPORT INFORMATION
  Report Type: 
  Country: None (occurrence: None)
  Receive Date: 20050804
  Receipt Date: 20050616
  Transmission Date: 20060218
  Serious: Yes (Other)
  Sender: FDA-Public Use
  Company Number: PHEH2005US06830

PATIENT
  Age: 53 Year
  Sex: Female
  Weight: 69 kg

DRUGS (7)
  1. ZELNORM [Suspect]
     Indication: CONSTIPATION
     Dosage: 6 MG, ONCE/SINGLE
     Route: 048
     Dates: start: 20050501, end: 20050501
  2. ZELNORM [Suspect]
     Dosage: 6 MG, PRN
     Route: 048
  3. ZELNORM [Suspect]
     Dosage: 6 MG, QD
     Route: 048
     Dates: start: 20050614
  4. ZELNORM [Suspect]
     Dosage: 6 MG PRN USUALLY 1 PILL 2-3 X WEEKLY
     Route: 048
  5. MIRALAX [Concomitant]
     Indication: CONSTIPATION
     Dosage: UNK, UNK
     Dates: start: 20050517, end: 20050517
  6. ESTRIOL [Concomitant]
     Dosage: 625 MG, BID
     Dates: start: 20040510
  7. ADVIL [Concomitant]
     Indication: HEADACHE
     Dosage: ONE TABLET PRN

REACTIONS (8)
  - ASTHENIA [None]
  - BACK PAIN [None]
  - CONSTIPATION [None]
  - DEHYDRATION [None]
  - DIARRHOEA [None]
  - DRUG INEFFECTIVE [None]
  - PAIN IN EXTREMITY [None]
  - TREATMENT NONCOMPLIANCE [None]
